FAERS Safety Report 4661689-5 (Version None)
Quarter: 2005Q2

REPORT INFORMATION
  Report Type: 
  Country: None (occurrence: None)
  Receive Date: 20050511
  Receipt Date: 20050511
  Transmission Date: 20051028
  Serious: Yes (Hospitalization)
  Sender: FDA-Public Use
  Company Number: None

PATIENT
  Age: 84 Year
  Sex: Male

DRUGS (7)
  1. GLYBURIDE [Suspect]
     Indication: DIABETES MELLITUS NON-INSULIN-DEPENDENT
     Dosage: 10 MG BID
     Dates: start: 19970401
  2. EPOGEN [Concomitant]
  3. FLUDROCORTISON [Concomitant]
  4. MAG OXIDE [Concomitant]
  5. METOPROLOL [Concomitant]
  6. ROSIGLITAZONE [Concomitant]
  7. CALCITONIN [Concomitant]

REACTIONS (2)
  - LETHARGY [None]
  - LOSS OF CONSCIOUSNESS [None]
